FAERS Safety Report 4861977-3 (Version None)
Quarter: 2005Q4

REPORT INFORMATION
  Report Type: 
  Country: None (occurrence: None)
  Receive Date: 20051130
  Receipt Date: 20050112
  Transmission Date: 20060501
  Serious: Yes (Hospitalization)
  Sender: FDA-Public Use
  Company Number: PHEH2005US00825

PATIENT
  Age: 83 Year
  Sex: Female
  Weight: 155 kg

DRUGS (4)
  1. LAMISIL [Suspect]
     Indication: NAIL TINEA
     Dosage: 250 MG, QD, ORAL
     Route: 048
     Dates: start: 20040607, end: 20040625
  2. PENLAC (CICLOPIROX) [Concomitant]
  3. ANTIDIABETICS [Concomitant]
  4. ANALGESICS [Concomitant]

REACTIONS (9)
  - ALANINE AMINOTRANSFERASE INCREASED [None]
  - ASPARTATE AMINOTRANSFERASE INCREASED [None]
  - BILIRUBIN CONJUGATED INCREASED [None]
  - BLOOD ALKALINE PHOSPHATASE [None]
  - BLOOD BILIRUBIN INCREASED [None]
  - MALAISE [None]
  - OCULAR ICTERUS [None]
  - TRANSAMINASES INCREASED [None]
  - WHITE BLOOD CELL COUNT DECREASED [None]
